FAERS Safety Report 23577120 (Version 1)
Quarter: 2024Q1

REPORT INFORMATION
  Report Type: Spontaneous
  Country: US (occurrence: None)
  Receive Date: 20240228
  Receipt Date: 20240228
  Transmission Date: 20240409
  Serious: Yes (Hospitalization)
  Sender: FDA-Public Use
  Company Number: None

PATIENT
  Age: 41 Year
  Sex: Male
  Weight: 74.25 kg

DRUGS (4)
  1. CARBATROL [Suspect]
     Active Substance: CARBAMAZEPINE
  2. KEPPRA [Suspect]
     Active Substance: LEVETIRACETAM
  3. LAMOTRIGINE [Suspect]
     Active Substance: LAMOTRIGINE
  4. NEURONTIN [Suspect]
     Active Substance: GABAPENTIN

REACTIONS (6)
  - Gait inability [None]
  - Dizziness [None]
  - Nausea [None]
  - Vomiting projectile [None]
  - Drug ineffective [None]
  - Seizure [None]

NARRATIVE: CASE EVENT DATE: 19991010
